FAERS Safety Report 25377167 (Version 2)
Quarter: 2025Q2

REPORT INFORMATION
  Report Type: Spontaneous
  Country: CL (occurrence: CL)
  Receive Date: 20250530
  Receipt Date: 20250618
  Transmission Date: 20250716
  Serious: Yes (Other)
  Sender: NOVO NORDISK
  Company Number: CL-NOVOPROD-1439925

PATIENT
  Sex: Female
  Weight: 64 kg

DRUGS (2)
  1. SAXENDA [Suspect]
     Active Substance: LIRAGLUTIDE
     Indication: Weight control
     Dates: start: 202505
  2. PRADAXA [Concomitant]
     Active Substance: DABIGATRAN ETEXILATE MESYLATE
     Indication: Thrombosis prophylaxis
     Dosage: 150 ML, QD (FREQUENCY: VARIED SCHEDULES)
     Route: 048

REACTIONS (1)
  - Colitis [Recovered/Resolved]
